FAERS Safety Report 9086460 (Version 1)
Quarter: 2013Q1

REPORT INFORMATION
  Report Type: Spontaneous
  Country: FR (occurrence: FR)
  Receive Date: 20130131
  Receipt Date: 20130131
  Transmission Date: 20140127
  Serious: Yes (Hospitalization)
  Sender: FDA-Public Use
  Company Number: FR-PFIZER INC-2013033333

PATIENT
  Age: 40 Year
  Sex: Female

DRUGS (3)
  1. TAZOCILLINE [Suspect]
     Indication: ENDOMETRITIS
     Dosage: 4 G, 3X/DAY
     Route: 042
     Dates: start: 20121114, end: 20121130
  2. VANCOMYCIN HCL [Suspect]
     Indication: ENDOMETRITIS
     Dosage: 30 MG/KG/DAY
     Route: 042
     Dates: start: 20121114, end: 20121130
  3. FRAGMIN [Concomitant]
     Indication: THROMBOSIS PROPHYLAXIS
     Dosage: 5000 IU DAILY

REACTIONS (3)
  - Leukopenia [Recovered/Resolved]
  - Thrombocytopenia [Recovered/Resolved]
  - Hyperthermia [Recovered/Resolved]
